FAERS Safety Report 23048151 (Version 1)
Quarter: 2023Q4

REPORT INFORMATION
  Report Type: Spontaneous
  Country: US (occurrence: US)
  Receive Date: 20231010
  Receipt Date: 20231010
  Transmission Date: 20240110
  Serious: No
  Sender: FDA-Public Use
  Company Number: US-SUN PHARMACEUTICAL INDUSTRIES LTD-2023R1-385699

PATIENT
  Sex: Female

DRUGS (1)
  1. CEQUA [Suspect]
     Active Substance: CYCLOSPORINE
     Indication: Product used for unknown indication
     Dosage: 1 DROP, BID APPROXIMATELY 12 HOURS APART INTO EACH EYE
     Route: 065

REACTIONS (5)
  - Product label confusion [Unknown]
  - Product dose confusion [Unknown]
  - Eye irritation [Unknown]
  - Incorrect dose administered [Unknown]
  - Therapy cessation [Unknown]
